FAERS Safety Report 19116456 (Version 1)
Quarter: 2021Q2

REPORT INFORMATION
  Report Type: Spontaneous
  Country: US (occurrence: US)
  Receive Date: 20210409
  Receipt Date: 20210409
  Transmission Date: 20210717
  Serious: No
  Sender: FDA-Public Use
  Company Number: NVSC2021US081071

PATIENT
  Age: 20 Year

DRUGS (1)
  1. TOBI PODHALER [Suspect]
     Active Substance: TOBRAMYCIN
     Indication: PRODUCT USED FOR UNKNOWN INDICATION
     Dosage: UNK UNK, BID (UNK (ALTERNATING 28 DAY PERIODS (28 DAYS ON, THEN 28 DAYS OFF)
     Route: 065

REACTIONS (1)
  - Nausea [Unknown]
